FAERS Safety Report 6196866-8 (Version None)
Quarter: 2009Q2

REPORT INFORMATION
  Report Type: 
  Country: None (occurrence: None)
  Receive Date: 20090518
  Receipt Date: 20090518
  Transmission Date: 20091009
  Serious: Yes (Hospitalization)
  Sender: FDA-Public Use
  Company Number: None

PATIENT
  Age: 41 Year
  Sex: Female
  Weight: 67.1324 kg

DRUGS (1)
  1. ORENCIA [Suspect]
     Indication: RHEUMATOID ARTHRITIS
     Dosage: 750MG EVERY 2 WEEKS X 3 IV THE EVERY 28 DAYS
     Route: 042
     Dates: start: 20081006, end: 20081201

REACTIONS (3)
  - FATIGUE [None]
  - FEELING ABNORMAL [None]
  - GRANULOMATOUS LIVER DISEASE [None]
